FAERS Safety Report 14101160 (Version 1)
Quarter: 2017Q4

REPORT INFORMATION
  Report Type: Report from Study
  Country: CN (occurrence: CN)
  Receive Date: 20171018
  Receipt Date: 20171018
  Transmission Date: 20180321
  Serious: Yes (Other)
  Sender: FDA-Public Use
  Company Number: CN-ROCHE-2007776

PATIENT

DRUGS (1)
  1. ALTEPLASE. [Suspect]
     Active Substance: ALTEPLASE
     Indication: ISCHAEMIC STROKE
     Dosage: 0.9 MG/KG UP TO A MAXIMUM OF 90 MG/KG WAS USED WITH 10 % OF THE TOTAL DOSAGE AS A BOLUS, FOLLOWED BY
     Route: 042

REACTIONS (2)
  - Haemorrhage intracranial [Unknown]
  - Cerebral haematoma [Unknown]
